FAERS Safety Report 8538819-8 (Version None)
Quarter: 2012Q3

REPORT INFORMATION
  Report Type: 
  Country: None (occurrence: None)
  Receive Date: 20120706
  Receipt Date: 20120618
  Transmission Date: 20120928
  Serious: Yes (Hospitalization)
  Sender: FDA-Public Use
  Company Number: 2012MZ000344

PATIENT
  Age: 56 Year
  Sex: Female

DRUGS (4)
  1. LIDOCAINE [Concomitant]
  2. INSULIN [Concomitant]
  3. BOTULINUM TOXIN TYPE A [Suspect]
     Indication: SKIN WRINKLING
     Dosage: 50 IU;X1;SC
     Route: 058
     Dates: start: 20120525, end: 20120525
  4. RADIESSE [Concomitant]

REACTIONS (9)
  - DYSPNOEA [None]
  - ABDOMINAL PAIN UPPER [None]
  - HYPERSENSITIVITY [None]
  - DUODENITIS [None]
  - LEUKOCYTOCLASTIC VASCULITIS [None]
  - BLOOD GLUCOSE INCREASED [None]
  - INJECTION SITE HAEMATOMA [None]
  - INJECTION SITE PRURITUS [None]
  - GASTRITIS [None]
